FAERS Safety Report 9731107 (Version 1)
Quarter: 2013Q4

REPORT INFORMATION
  Report Type: Spontaneous
  Country: US (occurrence: US)
  Receive Date: 20131203
  Receipt Date: 20131203
  Transmission Date: 20140711
  Serious: Yes (Life-Threatening)
  Sender: FDA-Public Use
  Company Number: US-JNJFOC-20131114645

PATIENT
  Age: 45 Year
  Sex: Female

DRUGS (2)
  1. DURAGESIC [Suspect]
     Indication: PAIN
     Route: 062
  2. PERCOCET [Concomitant]
     Route: 048

REACTIONS (2)
  - Burns third degree [Not Recovered/Not Resolved]
  - Drug dose omission [Unknown]
